FAERS Safety Report 16833986 (Version 1)
Quarter: 2019Q3

REPORT INFORMATION
  Report Type: Report from Study
  Country: US (occurrence: US)
  Receive Date: 20190920
  Receipt Date: 20190920
  Transmission Date: 20191005
  Serious: No
  Sender: FDA-Public Use
  Company Number: PHEH2019US038590

PATIENT
  Sex: Male

DRUGS (1)
  1. COSENTYX [Suspect]
     Active Substance: SECUKINUMAB
     Indication: PSORIASIS
     Dosage: 300 MG, QW AT WEEKS 0,1,2,3, AND 4 AND THEN EVERY 4 WEEKS
     Route: 058

REACTIONS (2)
  - Tooth disorder [Unknown]
  - Sinusitis [Recovering/Resolving]
